FAERS Safety Report 7323297-7 (Version None)
Quarter: 2011Q1

REPORT INFORMATION
  Report Type: 
  Country: None (occurrence: None)
  Receive Date: 20110301
  Receipt Date: 20110225
  Transmission Date: 20110831
  Serious: Yes (Hospitalization)
  Sender: FDA-Public Use
  Company Number: IT-SANOFI-AVENTIS-2011SA011819

PATIENT
  Age: 58 Year
  Sex: Female

DRUGS (9)
  1. ANTRA [Concomitant]
     Route: 065
  2. 5-FU [Suspect]
     Indication: COLON CANCER
     Route: 041
     Dates: start: 20100823, end: 20100823
  3. ELOXATIN [Suspect]
     Route: 042
     Dates: start: 20110124, end: 20110124
  4. SOLDESAM [Concomitant]
     Route: 065
  5. ELOXATIN [Suspect]
     Indication: RECTOSIGMOID CANCER
     Route: 042
     Dates: start: 20100823, end: 20100823
  6. 5-FU [Suspect]
     Route: 041
     Dates: start: 20110126, end: 20110126
  7. PREFOLIC [Concomitant]
     Route: 065
  8. KYTRIL [Concomitant]
     Route: 065
  9. ZOFRAN [Concomitant]
     Route: 065

REACTIONS (3)
  - HEPATITIS ACUTE [None]
  - LIVER INJURY [None]
  - ABDOMINAL PAIN [None]
